FAERS Safety Report 7542174-X (Version None)
Quarter: 2011Q2

REPORT INFORMATION
  Report Type: 
  Country: None (occurrence: None)
  Receive Date: 20110613
  Receipt Date: 20110529
  Transmission Date: 20111010
  Serious: No
  Sender: FDA-Public Use
  Company Number: US-B.I. PHARMACEUTICALS,INC./RIDGEFIELD-2011-BP-14269BP

PATIENT
  Sex: Female

DRUGS (10)
  1. RANITIDINE [Concomitant]
     Indication: DYSPEPSIA
     Dosage: 300 MG
     Route: 048
  2. CALCITRIOL [Concomitant]
     Dosage: 0.25 MG
     Route: 048
  3. CHLORTHALID [Concomitant]
     Dosage: 25 MG
     Route: 048
  4. ALPRAZOLAM [Concomitant]
     Indication: ANXIETY
     Dosage: 0.5 MG
     Route: 048
  5. AMBIENT [Concomitant]
     Indication: SLEEP DISORDER
     Route: 048
  6. PROBENECID [Concomitant]
     Indication: GOUT
     Dosage: 500 MG
     Route: 048
  7. PRADAXA [Suspect]
     Indication: ATRIAL FIBRILLATION
     Dosage: 150 MG
     Route: 048
     Dates: start: 20110513
  8. BYSTOLIC [Concomitant]
     Indication: HYPERTENSION
     Dosage: 20 MG
     Route: 048
  9. DILTIAZEM [Concomitant]
     Dosage: 180 MG
     Route: 048
  10. LOSARTAN POTASSIUM [Concomitant]
     Dosage: 100 MG
     Route: 048

REACTIONS (7)
  - MUSCULOSKELETAL DISCOMFORT [None]
  - NAUSEA [None]
  - FATIGUE [None]
  - HEADACHE [None]
  - ASTHENIA [None]
  - DIARRHOEA [None]
  - PAIN IN EXTREMITY [None]
